FAERS Safety Report 15617335 (Version 1)
Quarter: 2018Q4

REPORT INFORMATION
  Report Type: Spontaneous
  Country: GR (occurrence: GR)
  Receive Date: 20181114
  Receipt Date: 20181114
  Transmission Date: 20190205
  Serious: Yes (Other)
  Sender: FDA-Public Use
  Company Number: PHHY2018GR153878

PATIENT
  Age: 50 Year
  Sex: Female

DRUGS (2)
  1. FLUTICASONE. [Suspect]
     Active Substance: FLUTICASONE
     Indication: ASTHMA
     Route: 055
  2. COBICISTAT [Suspect]
     Active Substance: COBICISTAT
     Indication: HIV INFECTION
     Route: 065

REACTIONS (8)
  - Hyperaemia [Recovered/Resolved]
  - Asthenia [Recovered/Resolved]
  - Obesity [Recovered/Resolved]
  - Cushingoid [Recovered/Resolved]
  - Hypertension [Recovered/Resolved]
  - Weight increased [Recovered/Resolved]
  - Adrenal insufficiency [Recovered/Resolved]
  - Diabetes mellitus [Recovered/Resolved]
